FAERS Safety Report 4315018-7 (Version None)
Quarter: 2004Q1

REPORT INFORMATION
  Report Type: 
  Country: None (occurrence: None)
  Receive Date: 20040309
  Receipt Date: 20040223
  Transmission Date: 20041129
  Serious: Yes (Hospitalization)
  Sender: FDA-Public Use
  Company Number: UK052350

PATIENT
  Age: 6 Year
  Sex: Female

DRUGS (3)
  1. NEUPOGEN [Suspect]
     Indication: CHEMOTHERAPY
     Dosage: 300 MCG, AFTER CHEMO, SC
     Route: 058
     Dates: start: 20030101
  2. CARBOPLATIN [Suspect]
     Dosage: 406 MG, PER CHEMO REGIMEN, IV
     Route: 042
     Dates: start: 20030901, end: 20030901
  3. IRINOTECAN [Suspect]
     Dosage: 12 MG, PER CHEMO REGIMEN, IV
     Route: 042
     Dates: start: 20030901, end: 20030912

REACTIONS (7)
  - ANAEMIA [None]
  - DEHYDRATION [None]
  - DIARRHOEA [None]
  - FEBRILE NEUTROPENIA [None]
  - INFECTION [None]
  - MALIGNANT NEOPLASM PROGRESSION [None]
  - OPTIC TRACT GLIOMA [None]
